FAERS Safety Report 6495826-7 (Version None)
Quarter: 2009Q4

REPORT INFORMATION
  Report Type: 
  Country: None (occurrence: None)
  Receive Date: 20091214
  Receipt Date: 20091002
  Transmission Date: 20100525
  Serious: No
  Sender: FDA-Public Use
  Company Number: US-BRISTOL-MYERS SQUIBB COMPANY-14745566

PATIENT
  Age: 11 Year
  Sex: Female

DRUGS (4)
  1. ABILIFY [Suspect]
     Indication: ANXIETY
     Route: 048
     Dates: start: 20090401
  2. NALTREXONE HYDROCHLORIDE [Suspect]
  3. ZOLOFT [Suspect]
     Dosage: INITIAL DOSE:25G
  4. TENEX [Suspect]

REACTIONS (2)
  - DYSKINESIA [None]
  - RESTLESS LEGS SYNDROME [None]
